FAERS Safety Report 18447346 (Version 1)
Quarter: 2020Q4

REPORT INFORMATION
  Report Type: Spontaneous
  Country: US (occurrence: US)
  Receive Date: 20201030
  Receipt Date: 20201030
  Transmission Date: 20210114
  Serious: No
  Sender: FDA-Public Use
  Company Number: None

PATIENT
  Age: 74 Year
  Sex: Female

DRUGS (15)
  1. ALLOPURINOL. [Concomitant]
     Active Substance: ALLOPURINOL
  2. JANUVIA [Concomitant]
     Active Substance: SITAGLIPTIN PHOSPHATE
  3. RECLAST [Suspect]
     Active Substance: ZOLEDRONIC ACID
     Indication: OSTEOPOROSIS
     Dosage: ?          QUANTITY:1 INJECTION(S);OTHER FREQUENCY:ONCE A YEAR;?
     Route: 042
  4. VITAMIN D3 [Concomitant]
     Active Substance: CHOLECALCIFEROL
  5. LATANOPROST. [Concomitant]
     Active Substance: LATANOPROST
  6. BUMETONIDE [Concomitant]
  7. ASPIRIN. [Concomitant]
     Active Substance: ASPIRIN
  8. LORATADINE. [Concomitant]
     Active Substance: LORATADINE
  9. OLMESARTAN [Concomitant]
     Active Substance: OLMESARTAN
  10. FINASTERIDE. [Concomitant]
     Active Substance: FINASTERIDE
  11. PREMARIN CREAM [Concomitant]
  12. FAMTIDINE [Concomitant]
     Active Substance: FAMOTIDINE
  13. SIMBICORT [Concomitant]
     Active Substance: BUDESONIDE\FORMOTEROL FUMARATE
  14. ATORVASTATIN [Concomitant]
     Active Substance: ATORVASTATIN
  15. POTASSIUM CHLORIDE. [Concomitant]
     Active Substance: POTASSIUM CHLORIDE

REACTIONS (1)
  - Acute kidney injury [None]

NARRATIVE: CASE EVENT DATE: 20200610
